FAERS Safety Report 6721049-X (Version None)
Quarter: 2010Q2

REPORT INFORMATION
  Report Type: 
  Country: None (occurrence: None)
  Receive Date: 20100510
  Receipt Date: 20100426
  Transmission Date: 20101027
  Serious: Yes (Other)
  Sender: FDA-Public Use
  Company Number: 1000013659

PATIENT

DRUGS (1)
  1. CARBAMAZEPINE [Suspect]

REACTIONS (1)
  - SUICIDE ATTEMPT [None]
